FAERS Safety Report 9663330 (Version 1)
Quarter: 2013Q4

REPORT INFORMATION
  Report Type: Spontaneous
  Country: US (occurrence: US)
  Receive Date: 20131101
  Receipt Date: 20131101
  Transmission Date: 20140711
  Serious: Yes (Other)
  Sender: FDA-Public Use
  Company Number: US-ROCHE-1296815

PATIENT
  Sex: Female

DRUGS (4)
  1. NAPROSYN [Suspect]
     Indication: PRODUCT USED FOR UNKNOWN INDICATION
     Route: 065
  2. LOVENOX [Concomitant]
  3. COUMADIN [Concomitant]
  4. CELEBREX [Concomitant]

REACTIONS (2)
  - Pulmonary thrombosis [Unknown]
  - Pain [Unknown]
